FAERS Safety Report 24552977 (Version 2)
Quarter: 2025Q1

REPORT INFORMATION
  Report Type: Spontaneous
  Country: US (occurrence: US)
  Receive Date: 20241027
  Receipt Date: 20250123
  Transmission Date: 20250408
  Serious: No
  Sender: NOVARTIS
  Company Number: US-002147023-NVSC2024US203879

PATIENT
  Sex: Male

DRUGS (1)
  1. COSENTYX [Suspect]
     Active Substance: SECUKINUMAB
     Indication: Product used for unknown indication
     Dosage: 150 MILLIGRAM PER MILLILITRE, QMO (ON COSENTYX FROM 2 YEARS NO MORE THAN 3)
     Route: 065

REACTIONS (4)
  - Osteitis [Unknown]
  - Inadvertent injection air bubble [Unknown]
  - Device leakage [Unknown]
  - Pain in jaw [Unknown]
